FAERS Safety Report 9867117 (Version 3)
Quarter: 2014Q1

REPORT INFORMATION
  Report Type: Spontaneous
  Country: US (occurrence: US)
  Receive Date: 20140204
  Receipt Date: 20140326
  Transmission Date: 20141002
  Serious: Yes (Other)
  Sender: FDA-Public Use
  Company Number: US-SA-2014SA013512

PATIENT
  Age: 56 Year
  Sex: Female
  Weight: 78 kg

DRUGS (7)
  1. LANTUS [Suspect]
     Indication: DIABETES MELLITUS
     Route: 051
  2. LANTUS SOLOSTAR [Suspect]
     Indication: TYPE 2 DIABETES MELLITUS
     Dosage: 30 UNITS MORNING AND EVENING. DOSE:30 UNIT(S)
     Route: 051
     Dates: start: 20131224
  3. SOLOSTAR [Concomitant]
     Dates: start: 20140110
  4. XANAX [Concomitant]
     Indication: GOUT
     Route: 065
     Dates: start: 1991
  5. PROZAC [Concomitant]
     Indication: DEPRESSION
     Route: 065
     Dates: start: 2007, end: 20131114
  6. PHENERGAN [Concomitant]
     Indication: MIGRAINE
     Dates: start: 2000
  7. BAYER CHILDREN^S ASPIRIN [Concomitant]
     Indication: ANTICOAGULANT THERAPY
     Dates: start: 2011

REACTIONS (6)
  - Stress [Not Recovered/Not Resolved]
  - Anxiety [Not Recovered/Not Resolved]
  - Mobility decreased [Not Recovered/Not Resolved]
  - Paraesthesia [Not Recovered/Not Resolved]
  - Blood glucose increased [Unknown]
  - Glycosylated haemoglobin increased [Unknown]
